FAERS Safety Report 8808830 (Version 1)
Quarter: 2012Q4

REPORT INFORMATION
  Report Type: 
  Country: US (occurrence: US)
  Receive Date: 20120926
  Receipt Date: 20120926
  Transmission Date: 20130627
  Serious: Yes (Hospitalization, Other)
  Sender: FDA-Public Use
  Company Number: US-PFIZER INC-2012236880

PATIENT
  Age: 69 Year
  Sex: Female
  Weight: 85.26 kg

DRUGS (8)
  1. LYRICA [Suspect]
     Indication: DIABETIC NEUROPATHY
     Dosage: 75 mg, 2x/day
     Route: 048
     Dates: end: 2012
  2. JANUVIA [Concomitant]
     Dosage: UNK
  3. PROTONIX [Concomitant]
     Dosage: UNK
  4. LASIX [Concomitant]
     Dosage: UNK
  5. TRICOR [Concomitant]
     Dosage: UNK
  6. DIOVAN HCT [Concomitant]
     Dosage: UNK
  7. SYNTHROID [Concomitant]
     Dosage: UNK
  8. PLAVIX [Concomitant]
     Dosage: UNK

REACTIONS (3)
  - Toe amputation [Unknown]
  - Gangrene [Unknown]
  - Diabetic neuropathy [Unknown]
